FAERS Safety Report 8993086 (Version 1)
Quarter: 2013Q1

REPORT INFORMATION
  Report Type: Spontaneous
  Country: US (occurrence: US)
  Receive Date: 20130102
  Receipt Date: 20130102
  Transmission Date: 20140127
  Serious: Yes (Other)
  Sender: FDA-Public Use
  Company Number: US-PFIZER INC-2012332451

PATIENT
  Age: 49 Year
  Sex: 0

DRUGS (3)
  1. CELEBREX [Suspect]
     Dosage: 200 MG, DAILY
  2. EFFEXOR XR [Suspect]
     Dosage: 150 MG, DAILY
  3. LYRICA [Suspect]
     Dosage: 200 MG, 2X/DAY

REACTIONS (1)
  - Surgery [Recovered/Resolved]
